FAERS Safety Report 9580641 (Version 1)
Quarter: 2013Q3

REPORT INFORMATION
  Report Type: Spontaneous
  Country: US (occurrence: None)
  Receive Date: 20130916
  Receipt Date: 20130916
  Transmission Date: 20140515
  Serious: Yes (Other)
  Sender: FDA-Public Use
  Company Number: JPI-P-031182

PATIENT
  Age: 44 Year
  Sex: Female
  Weight: 63.5 kg

DRUGS (3)
  1. XYREM [Suspect]
     Indication: INSOMNIA
     Route: 048
     Dates: start: 20130314, end: 20130320
  2. VENLAFAXINE HYDROCHLORIDE [Concomitant]
  3. LAMOTRIGINE [Concomitant]

REACTIONS (2)
  - Depression [None]
  - Condition aggravated [None]
